FAERS Safety Report 9789900 (Version 1)
Quarter: 2013Q4

REPORT INFORMATION
  Report Type: Spontaneous
  Country: US (occurrence: None)
  Receive Date: 20131227
  Receipt Date: 20131227
  Transmission Date: 20140711
  Serious: Yes (Other)
  Sender: FDA-Public Use
  Company Number: SYM-2013-14326

PATIENT
  Age: 60 Year
  Sex: Male

DRUGS (1)
  1. XENAZINE [Suspect]
     Indication: HUNTINGTON^S DISEASE
     Dosage: 12.5MG, 3 IN 1 D, ORAL
     Route: 048
     Dates: start: 2008

REACTIONS (4)
  - Anxiety [None]
  - Muscle twitching [None]
  - Suicidal ideation [None]
  - Drug dose omission [None]
